FAERS Safety Report 24529826 (Version 2)
Quarter: 2024Q4

REPORT INFORMATION
  Report Type: Report from Study
  Country: US (occurrence: US)
  Receive Date: 20241021
  Receipt Date: 20241112
  Transmission Date: 20250114
  Serious: No
  Sender: SUNOVION
  Company Number: US-SUMITOMO PHARMA SWITZERLAND GMBH-2024SPA003832

PATIENT

DRUGS (2)
  1. ORGOVYX [Suspect]
     Active Substance: RELUGOLIX
     Indication: Prostate cancer
     Dosage: 360 MG
     Route: 048
  2. ORGOVYX [Suspect]
     Active Substance: RELUGOLIX
     Dosage: 120 MG, QD
     Route: 048
     Dates: start: 20241018

REACTIONS (7)
  - Temperature regulation disorder [Unknown]
  - Cold sweat [Unknown]
  - Road traffic accident [Unknown]
  - Impaired healing [Not Recovered/Not Resolved]
  - Dyspnoea [Unknown]
  - Muscle atrophy [Unknown]
  - Peripheral coldness [Unknown]
